FAERS Safety Report 12789057 (Version 1)
Quarter: 2016Q3

REPORT INFORMATION
  Report Type: Spontaneous
  Country: US (occurrence: US)
  Receive Date: 20160928
  Receipt Date: 20160928
  Transmission Date: 20161109
  Serious: Yes (Hospitalization)
  Sender: FDA-Public Use
  Company Number: None

PATIENT
  Age: 66 Year
  Sex: Male
  Weight: 122 kg

DRUGS (1)
  1. OCTAGAM IMMUNE GLOBULIN (HUMAN) [Suspect]
     Active Substance: HUMAN IMMUNOGLOBULIN G
     Indication: THROMBOCYTOPENIA
     Dosage: 292 ML/HR, IVPB
     Dates: start: 20160414

REACTIONS (3)
  - Lip swelling [None]
  - Product quality issue [None]
  - Infusion site pruritus [None]

NARRATIVE: CASE EVENT DATE: 20160414
